FAERS Safety Report 9411593 (Version 1)
Quarter: 2013Q3

REPORT INFORMATION
  Report Type: Spontaneous
  Country: US (occurrence: None)
  Receive Date: 20130718
  Receipt Date: 20130718
  Transmission Date: 20140515
  Serious: Yes (Other)
  Sender: FDA-Public Use
  Company Number: None

PATIENT
  Age: 58 Year
  Sex: Female
  Weight: 65.77 kg

DRUGS (3)
  1. METOPROLOL ER [Suspect]
     Indication: HYPERTENSION
     Dosage: 1 TAB DAILY
     Dates: start: 201104, end: 201307
  2. LISINOPRIL [Suspect]
     Indication: HYPERTENSION
     Dosage: 1 TAB DAILY
     Dates: start: 201004, end: 201307
  3. AMLODIPINE [Suspect]
     Indication: HYPERTENSION
     Dosage: 1 TAB DAILY
     Dates: start: 201004, end: 201307

REACTIONS (20)
  - Fatigue [None]
  - Heart rate irregular [None]
  - Headache [None]
  - Flushing [None]
  - Hyperhidrosis [None]
  - Skin exfoliation [None]
  - Skin atrophy [None]
  - Dehydration [None]
  - Pain in extremity [None]
  - Hypoaesthesia [None]
  - Back pain [None]
  - Memory impairment [None]
  - Contusion [None]
  - Dry eye [None]
  - Nasal disorder [None]
  - Vision blurred [None]
  - Depression [None]
  - Constipation [None]
  - Social avoidant behaviour [None]
  - Dyspepsia [None]
